FAERS Safety Report 5086153-3 (Version None)
Quarter: 2006Q3

REPORT INFORMATION
  Report Type: 
  Country: None (occurrence: None)
  Receive Date: 20060818
  Receipt Date: 20060807
  Transmission Date: 20061208
  Serious: Yes (Hospitalization)
  Sender: FDA-Public Use
  Company Number: 2006096297

PATIENT
  Age: 44 Year
  Sex: Female
  Weight: 58 kg

DRUGS (4)
  1. FLUCONAZOLE [Suspect]
     Indication: DRUG USE FOR UNKNOWN INDICATION
     Dosage: 2 DF (DOSE FORMAL UNKNOWN) ORAL
     Route: 048
     Dates: start: 20060716, end: 20060723
  2. NIFLURIL (NIFLUMIC ACID) [Suspect]
     Indication: DRUG USE FOR UNKNOWN INDICATION
     Dosage: 2 DF (DOSE FORMS) ORAL
     Route: 048
     Dates: start: 20060716, end: 20060723
  3. CEFIXIME CHEWABLE [Suspect]
     Indication: DRUG USE FOR UNKNOWN INDICATION
     Dosage: 2 DF (DOSE FORMS) ORAL
     Route: 048
     Dates: start: 20060716, end: 20060723
  4. VEGETOSERUM (ACONITE TINCTURE, BELLADONNA TINCTURE, CHERRY-ALUREL WATE [Suspect]
     Indication: DRUG USE FOR UNKNOWN INDICATION
     Dosage: ORAL
     Route: 048

REACTIONS (2)
  - INFECTION [None]
  - URTICARIA [None]
